FAERS Safety Report 5775641-X (Version None)
Quarter: 2008Q2

REPORT INFORMATION
  Report Type: 
  Country: None (occurrence: None)
  Receive Date: 20080617
  Receipt Date: 20080323
  Transmission Date: 20081010
  Serious: No
  Sender: FDA-Public Use
  Company Number: US-BAYER-200818237NA

PATIENT
  Age: 20 Year
  Sex: Female
  Weight: 88 kg

DRUGS (2)
  1. YAZ [Suspect]
     Indication: CONTRACEPTION
     Route: 048
     Dates: start: 20070901, end: 20080201
  2. ANTIDEPRESSANTS NOS [Concomitant]
     Indication: DEPRESSION
     Dates: start: 19990101

REACTIONS (1)
  - MENORRHAGIA [None]
